FAERS Safety Report 6492107-2 (Version None)
Quarter: 2009Q4

REPORT INFORMATION
  Report Type: 
  Country: None (occurrence: None)
  Receive Date: 20091125
  Receipt Date: 20090518
  Transmission Date: 20100525
  Serious: Yes (Hospitalization)
  Sender: FDA-Public Use
  Company Number: 2009BH008761

PATIENT
  Age: 76 Year
  Sex: Female
  Weight: 59 kg

DRUGS (30)
  1. DIANEAL [Suspect]
     Indication: RENAL FAILURE CHRONIC
     Dosage: 12 L; EVERY DAY; IP
     Route: 033
     Dates: end: 20090504
  2. ZEMPLAR [Concomitant]
  3. VANCOMYCIN [Concomitant]
  4. GENTAMICIN [Concomitant]
  5. HEPARIN [Concomitant]
  6. EPO [Concomitant]
  7. AMBIEN [Concomitant]
  8. HALDOL [Concomitant]
  9. SENSIPAR [Concomitant]
  10. ATIVAN [Concomitant]
  11. HYDROXYZINE [Concomitant]
  12. CLONIDINE HYDROCHLORIDE [Concomitant]
  13. SYNTHROID [Concomitant]
  14. PROSTAT [Concomitant]
  15. RENAGEL [Concomitant]
  16. PROTEIN SUPPLEMENTS [Concomitant]
  17. PHENERGAN HCL [Concomitant]
  18. MILK OF MAGNESIA TAB [Concomitant]
  19. DIATX [Concomitant]
  20. ROBITUSSIN ^ROBINS^ [Concomitant]
  21. VITAMIN B-12 [Concomitant]
  22. THIAMINE HYDROCHLORIDE [Concomitant]
  23. PYRIDOXINE [Concomitant]
  24. NEPRO [Concomitant]
  25. PEPCID [Concomitant]
  26. ACETAMINOPHEN [Concomitant]
  27. ATIVAN [Concomitant]
  28. MICRO-K [Concomitant]
  29. MEGACE [Concomitant]
  30. BACTROBAN [Concomitant]

REACTIONS (3)
  - NAUSEA [None]
  - PERITONITIS BACTERIAL [None]
  - VOMITING [None]
